FAERS Safety Report 8578996 (Version 4)
Quarter: 2013Q4

REPORT INFORMATION
  Report Type: Spontaneous
  Country: BR (occurrence: BR)
  Receive Date: 20120524
  Receipt Date: 20131114
  Transmission Date: 20140711
  Serious: Yes (Other)
  Sender: FDA-Public Use
  Company Number: BR-PFIZER INC-2010095899

PATIENT
  Age: 61 Year
  Sex: Female
  Weight: 86 kg

DRUGS (10)
  1. FRONTAL [Suspect]
     Indication: DEPRESSION
     Dosage: 0.5 MG, 1X/DAY
     Route: 048
     Dates: start: 2002
  2. FRONTAL [Suspect]
     Dosage: 2 MG, 2X/DAY
     Route: 048
     Dates: start: 20100430
  3. FRONTAL [Suspect]
     Dosage: 1 MG, 3X/DAY
     Route: 048
     Dates: start: 20120515
  4. FRONTAL XR [Suspect]
     Indication: ANXIETY
     Dosage: 0.5 MG, 1X/DAY (ONE TABLET DAILY)
     Route: 048
     Dates: start: 20100430
  5. FRONTAL XR [Suspect]
     Dosage: 2 TABLETS OF 0.5MG (1 MG), DAILY
     Route: 048
     Dates: start: 2012, end: 2012
  6. ATENOLOL [Concomitant]
     Indication: HYPERTENSION
     Dosage: 2 DF (TABLETS), DAILY
     Dates: start: 2011
  7. CAPTOPRIL [Concomitant]
     Indication: HYPERTENSION
     Dosage: UNK
  8. MODURETIC [Concomitant]
     Indication: HYPERTENSION
     Dosage: UNK
  9. GLIFAGE [Concomitant]
     Indication: DIABETES MELLITUS
     Dosage: 2 IN THE MORNING AND 2 AT NIGHT
     Dates: start: 2010
  10. LOSARTAN [Concomitant]
     Indication: HYPERTENSION
     Dosage: 2 TABLETS OF 50MG (100 MG), DAILY
     Dates: start: 201308

REACTIONS (8)
  - Blood pressure increased [Not Recovered/Not Resolved]
  - Convulsion [Unknown]
  - Diarrhoea [Unknown]
  - Vomiting [Unknown]
  - Insomnia [Unknown]
  - Feeling abnormal [Unknown]
  - Depression [Unknown]
  - Anxiety [Unknown]
